FAERS Safety Report 10306342 (Version 1)
Quarter: 2014Q3

REPORT INFORMATION
  Report Type: Spontaneous
  Country: IT (occurrence: IT)
  Receive Date: 20140715
  Receipt Date: 20140715
  Transmission Date: 20150326
  Serious: Yes (Hospitalization)
  Sender: FDA-Public Use
  Company Number: IT-PFIZER INC-2014196388

PATIENT
  Age: 18 Month
  Sex: Male

DRUGS (1)
  1. MEDROL [Suspect]
     Active Substance: METHYLPREDNISOLONE
     Dosage: 2 TABLETS, DAILY
     Route: 048
     Dates: start: 20140211, end: 20140211

REACTIONS (2)
  - Accidental exposure to product [Unknown]
  - Vomiting [Unknown]

NARRATIVE: CASE EVENT DATE: 20140211
